FAERS Safety Report 7801931-2 (Version None)
Quarter: 2011Q4

REPORT INFORMATION
  Report Type: 
  Country: None (occurrence: None)
  Receive Date: 20111007
  Receipt Date: 20111007
  Transmission Date: 20120403
  Serious: Yes (Death)
  Sender: FDA-Public Use
  Company Number: None

PATIENT
  Age: 46 Year
  Sex: Male
  Weight: 81.646 kg

DRUGS (1)
  1. SEROQUEL [Suspect]
     Dosage: 50
     Route: 048

REACTIONS (1)
  - APPARENT DEATH [None]
